FAERS Safety Report 14230929 (Version 1)
Quarter: 2017Q4

REPORT INFORMATION
  Report Type: Spontaneous
  Country: US (occurrence: US)
  Receive Date: 20171128
  Receipt Date: 20171128
  Transmission Date: 20180321
  Serious: No
  Sender: FDA-Public Use
  Company Number: US-JNJFOC-20171008640

PATIENT
  Sex: Female

DRUGS (2)
  1. PEPCID [Suspect]
     Active Substance: FAMOTIDINE
     Indication: PRODUCT USED FOR UNKNOWN INDICATION
     Route: 048
     Dates: start: 20171006, end: 20171006
  2. PEPCID [Suspect]
     Active Substance: FAMOTIDINE
     Route: 048

REACTIONS (1)
  - Expired product administered [Unknown]
